FAERS Safety Report 7081731-4 (Version None)
Quarter: 2010Q4

REPORT INFORMATION
  Report Type: 
  Country: None (occurrence: None)
  Receive Date: 20101103
  Receipt Date: 20101019
  Transmission Date: 20110411
  Serious: Yes (Death, Life-Threatening, Hospitalization)
  Sender: FDA-Public Use
  Company Number: AU-GENENTECH-308343

PATIENT
  Sex: Male
  Weight: 88.1 kg

DRUGS (36)
  1. RITUXIMAB [Suspect]
     Indication: DIFFUSE LARGE B-CELL LYMPHOMA
     Dosage: 750 MG, Q21D
     Route: 042
     Dates: start: 20091202
  2. PLACEBO [Suspect]
     Indication: DIFFUSE LARGE B-CELL LYMPHOMA
     Dosage: UNK
     Route: 042
     Dates: start: 20091201
  3. DOXORUBICIN HCL [Suspect]
     Indication: DIFFUSE LARGE B-CELL LYMPHOMA
     Dosage: 100 MG, Q21D
     Route: 042
     Dates: start: 20091202, end: 20100113
  4. DOXORUBICIN HCL [Suspect]
     Dosage: 75 MG, Q21D
     Route: 042
     Dates: start: 20100113
  5. DOXORUBICIN HCL [Suspect]
     Dosage: 50 MG, Q21D
     Route: 042
  6. VINCRISTINE [Suspect]
     Indication: DIFFUSE LARGE B-CELL LYMPHOMA
     Dosage: 2 MG, Q21D
     Route: 042
     Dates: start: 20091202
  7. CYCLOPHOSPHAMIDE [Suspect]
     Indication: DIFFUSE LARGE B-CELL LYMPHOMA
     Dosage: 1500 MG, Q21D
     Route: 042
     Dates: start: 20091202, end: 20100113
  8. CYCLOPHOSPHAMIDE [Suspect]
     Dosage: 1125 MG, Q21D
     Route: 042
     Dates: start: 20100113
  9. CYCLOPHOSPHAMIDE [Suspect]
     Dosage: 750 MG, Q3W
     Route: 042
  10. PREDNISOLONE [Suspect]
     Indication: DIFFUSE LARGE B-CELL LYMPHOMA
     Dosage: 100 MG, UNK
     Route: 048
     Dates: start: 20091202
  11. METHOTREXATE [Suspect]
     Indication: PRODUCT USED FOR UNKNOWN INDICATION
     Route: 065
  12. ISOSORBIDE MONONITRATE [Concomitant]
     Indication: PRODUCT USED FOR UNKNOWN INDICATION
     Dosage: UNK
  13. MICARDIS HCT [Concomitant]
     Indication: PRODUCT USED FOR UNKNOWN INDICATION
     Dosage: UNK
     Dates: end: 20100909
  14. ASPIRIN [Concomitant]
     Indication: PRODUCT USED FOR UNKNOWN INDICATION
     Dosage: UNK
  15. ESOMEPRAZOLE [Concomitant]
     Indication: PRODUCT USED FOR UNKNOWN INDICATION
     Dosage: UNK
  16. AMLODIPINE [Concomitant]
     Indication: PRODUCT USED FOR UNKNOWN INDICATION
     Dosage: UNK
     Dates: end: 20100902
  17. AMLODIPINE [Concomitant]
     Dosage: UNK
     Dates: start: 20100904, end: 20100904
  18. METHYLDOPA [Concomitant]
     Indication: PRODUCT USED FOR UNKNOWN INDICATION
     Dosage: UNK
  19. METHYLDOPA [Concomitant]
     Dosage: UNK
     Dates: start: 20100902, end: 20100902
  20. METOPROLOL [Concomitant]
     Indication: PRODUCT USED FOR UNKNOWN INDICATION
     Dosage: UNK
     Dates: start: 20100921, end: 20100923
  21. METOPROLOL [Concomitant]
     Dosage: UNK
     Dates: start: 20100923
  22. INSULIN NOVO RAPITARD [Concomitant]
     Indication: PRODUCT USED FOR UNKNOWN INDICATION
     Dosage: 16 UNIT, UNK
  23. ISOPHANE INSULIN [Concomitant]
     Indication: PRODUCT USED FOR UNKNOWN INDICATION
     Dosage: 34 UNIT, UNK
  24. XALATAN [Concomitant]
     Indication: PRODUCT USED FOR UNKNOWN INDICATION
     Dosage: 1 GTT, UNK
     Dates: end: 20100902
  25. SERETIDE [Concomitant]
     Indication: PRODUCT USED FOR UNKNOWN INDICATION
     Dosage: UNK
     Dates: end: 20100902
  26. VYTORIN [Concomitant]
     Indication: PRODUCT USED FOR UNKNOWN INDICATION
     Dosage: UNK
     Dates: end: 20100902
  27. ALLOPURINOL [Concomitant]
     Indication: PRODUCT USED FOR UNKNOWN INDICATION
     Dosage: UNK
     Dates: start: 20091130
  28. NOVORAPID [Concomitant]
     Indication: PRODUCT USED FOR UNKNOWN INDICATION
     Dosage: 48 UNIT, UNK
     Dates: start: 20020101, end: 20100901
  29. LANTUS [Concomitant]
     Indication: PRODUCT USED FOR UNKNOWN INDICATION
     Dosage: 26 UNIT, UNK
     Dates: start: 20100902
  30. CLEXANE [Concomitant]
     Indication: PRODUCT USED FOR UNKNOWN INDICATION
     Dosage: UNK
     Dates: start: 20100902
  31. CLEXANE [Concomitant]
     Dosage: UNK
     Dates: start: 20100921, end: 20100923
  32. OMEPRAZOLE [Concomitant]
     Indication: PRODUCT USED FOR UNKNOWN INDICATION
     Dosage: UNK
     Dates: start: 19960101
  33. COLOXYL + SENNA [Concomitant]
     Indication: PRODUCT USED FOR UNKNOWN INDICATION
     Dosage: UNK
     Dates: start: 20100902
  34. TELMISARTAN [Concomitant]
     Indication: PRODUCT USED FOR UNKNOWN INDICATION
  35. CITALOPRAM HYDROBROMIDE [Concomitant]
     Indication: PRODUCT USED FOR UNKNOWN INDICATION
     Dosage: UNK
     Dates: start: 20100924
  36. BETAXOLOL [Concomitant]
     Indication: PRODUCT USED FOR UNKNOWN INDICATION
     Dosage: UNK
     Dates: start: 20100921

REACTIONS (3)
  - DEATH [None]
  - MYOCARDIAL INFARCTION [None]
  - PNEUMONIA [None]
